FAERS Safety Report 9351549 (Version 1)
Quarter: 2013Q2

REPORT INFORMATION
  Report Type: Spontaneous
  Country: TR (occurrence: TR)
  Receive Date: 20130617
  Receipt Date: 20130617
  Transmission Date: 20140414
  Serious: Yes (Other)
  Sender: FDA-Public Use
  Company Number: PHHY2013TR060330

PATIENT
  Age: 34 Year
  Sex: Female
  Weight: 48 kg

DRUGS (4)
  1. EXJADE [Suspect]
     Indication: THALASSAEMIA BETA
     Dosage: 1750 MG, DAILY
     Route: 048
  2. EXJADE [Suspect]
     Dosage: UNK UKN, UNK
  3. EUTHYROX [Concomitant]
     Indication: THYROID DISORDER
     Dosage: 150 MG, UNK
     Route: 048
  4. CONCOR [Concomitant]
     Indication: CARDIOVASCULAR DISORDER
     Dosage: 5 MG, UNK
     Route: 048

REACTIONS (4)
  - Asthma [Recovered/Resolved]
  - Arrhythmia [Recovered/Resolved]
  - Pharyngitis [Recovered/Resolved]
  - Serum ferritin abnormal [Recovered/Resolved]
